FAERS Safety Report 4694284-2 (Version None)
Quarter: 2005Q2

REPORT INFORMATION
  Report Type: 
  Country: None (occurrence: None)
  Receive Date: 20050620
  Receipt Date: 20050520
  Transmission Date: 20051028
  Serious: Yes (Life-Threatening)
  Sender: FDA-Public Use
  Company Number: PHBS2005AT07195

PATIENT
  Age: 58 Year
  Sex: Female

DRUGS (8)
  1. DIGIMERCK [Concomitant]
     Dosage: 0.07 MG, UNK
     Route: 048
  2. LASIX [Concomitant]
     Dosage: 40 MG, UNK
  3. MARCOUMAR [Concomitant]
  4. PANTOPRAZOLE SODIUM [Concomitant]
     Dosage: 20 MG, UNK
  5. SEDACORON [Concomitant]
     Dosage: 200 MG, UNK
  6. ENALAPRIL W/HYDROCHLOROTHIAZIDE [Suspect]
  7. BECONASE [Concomitant]
  8. DIOVAN [Suspect]

REACTIONS (2)
  - LARYNGEAL OEDEMA [None]
  - PHARYNGEAL OEDEMA [None]
